FAERS Safety Report 11365187 (Version 1)
Quarter: 2015Q3

REPORT INFORMATION
  Report Type: Spontaneous
  Country: BR (occurrence: BR)
  Receive Date: 20150811
  Receipt Date: 20150811
  Transmission Date: 20151125
  Serious: Yes (Other)
  Sender: FDA-Public Use
  Company Number: BR-DSJP-DSU-2013-03681

PATIENT

DRUGS (9)
  1. AMLODIPINE BESILATE [Concomitant]
     Active Substance: AMLODIPINE BESYLATE
     Indication: PRODUCT USED FOR UNKNOWN INDICATION
     Dosage: UNKNOWN     EVERY
     Route: 048
  2. MIOFLEX                            /00057702/ [Concomitant]
     Active Substance: SUCCINYLCHOLINE CHLORIDE
     Indication: SPINAL PAIN
  3. OLMETEC [Suspect]
     Active Substance: OLMESARTAN MEDOXOMIL
     Indication: PRODUCT USED FOR UNKNOWN INDICATION
     Dosage: 40/12.5 MG
     Dates: start: 20150715
  4. OSTEO BI-FLEX [Concomitant]
     Active Substance: CHONDROITIN SULFATE A\GLUCOSAMINE
     Indication: OSTEOARTHRITIS
     Dosage: 2 TABLETS EVERY 12 HOURS
     Route: 048
     Dates: start: 2008
  5. BESEROL                            /00112701/ [Concomitant]
     Active Substance: ACETAMINOPHEN\CHLORMEZANONE
     Indication: SPINAL PAIN
  6. OLMETEC 20 MG [Suspect]
     Active Substance: OLMESARTAN MEDOXOMIL
     Dosage: 40 MG, QD
     Route: 048
  7. PURAN [Concomitant]
     Active Substance: LEVOTHYROXINE SODIUM
     Indication: HYPOTHYROIDISM
     Dosage: QD
     Route: 048
     Dates: start: 2001
  8. OLMETEC 20 MG [Suspect]
     Active Substance: OLMESARTAN MEDOXOMIL
     Indication: HYPERTENSION
     Dosage: 20 MG, QD (HALF TABLET)
     Route: 048
     Dates: start: 2013, end: 20150724
  9. PANTOPRAZOLE [Concomitant]
     Active Substance: PANTOPRAZOLE SODIUM
     Indication: REFLUX GASTRITIS

REACTIONS (9)
  - Drug dispensing error [None]
  - Stress [Unknown]
  - Blood pressure increased [Unknown]
  - Hypersensitivity [Unknown]
  - Blood pressure decreased [Unknown]
  - Pain [Unknown]
  - Peripheral swelling [Unknown]
  - Hypertensive crisis [Unknown]
  - Weight increased [Unknown]

NARRATIVE: CASE EVENT DATE: 2012
